FAERS Safety Report 22183601 (Version 3)
Quarter: 2023Q2

REPORT INFORMATION
  Report Type: Report from Study
  Country: US (occurrence: US)
  Receive Date: 20230406
  Receipt Date: 20230522
  Transmission Date: 20230722
  Serious: Yes (Life-Threatening)
  Sender: FDA-Public Use
  Company Number: US-PROGENICS PHARMACEUTICALS/LANTHEUS HOLDINGS-LMI-2023-00396

PATIENT
  Age: 16 Year
  Sex: Male
  Weight: 23.1 kg

DRUGS (1)
  1. AZEDRA [Suspect]
     Active Substance: IOBENGUANE I-131
     Indication: Neuroblastoma
     Dosage: 1.0-20 MCG/ML
     Route: 042
     Dates: start: 20090501, end: 20090501

REACTIONS (1)
  - Osteosarcoma [Not Recovered/Not Resolved]

NARRATIVE: CASE EVENT DATE: 20170606
